FAERS Safety Report 11079054 (Version 1)
Quarter: 2015Q2

REPORT INFORMATION
  Report Type: Spontaneous
  Country: US (occurrence: None)
  Receive Date: 20150429
  Receipt Date: 20150429
  Transmission Date: 20150821
  Serious: Yes (Hospitalization)
  Sender: FDA-Public Use
  Company Number: None

PATIENT
  Age: 85 Year
  Sex: Male
  Weight: 53.52 kg

DRUGS (9)
  1. CHOLECALCIFEROL-VITAMIN D3 [Concomitant]
  2. ALLOPURINOL. [Concomitant]
     Active Substance: ALLOPURINOL
  3. ASCORBIC ACID. [Concomitant]
     Active Substance: ASCORBIC ACID
  4. FISH OIL [Concomitant]
     Active Substance: FISH OIL
  5. ACYCLOVIR. [Concomitant]
     Active Substance: ACYCLOVIR
  6. BUDESONIDE-FORMOTEROL [Concomitant]
     Active Substance: BUDESONIDE\FORMOTEROL
  7. RUXOLITINIB [Suspect]
     Active Substance: RUXOLITINIB
     Indication: CHRONIC MYELOID LEUKAEMIA
     Route: 048
     Dates: start: 20150401, end: 20150423
  8. ALBUTEROL. [Concomitant]
     Active Substance: ALBUTEROL
  9. FOLIC ACID. [Concomitant]
     Active Substance: FOLIC ACID

REACTIONS (4)
  - Anaemia postoperative [None]
  - Fall [None]
  - Femoral neck fracture [None]
  - Balance disorder [None]

NARRATIVE: CASE EVENT DATE: 20150423
